FAERS Safety Report 20725478 (Version 1)
Quarter: 2022Q2

REPORT INFORMATION
  Report Type: Spontaneous
  Country: US (occurrence: US)
  Receive Date: 20220419
  Receipt Date: 20220419
  Transmission Date: 20220720
  Serious: Yes (Hospitalization, Other)
  Sender: FDA-Public Use
  Company Number: US-ALXN-A202204660

PATIENT
  Sex: Male

DRUGS (1)
  1. SOLIRIS [Suspect]
     Active Substance: ECULIZUMAB
     Indication: Product used for unknown indication
     Dosage: UNK
     Route: 065

REACTIONS (12)
  - Pancreatitis [Unknown]
  - Gastrointestinal haemorrhage [Unknown]
  - Platelet count decreased [Unknown]
  - Complement factor increased [Unknown]
  - Inflammation [Unknown]
  - Renal function test abnormal [Unknown]
  - Oxygen saturation abnormal [Unknown]
  - Blood pressure abnormal [Unknown]
  - Haemoglobin decreased [Unknown]
  - Contusion [Unknown]
  - Abdominal pain [Unknown]
  - Drug ineffective [Unknown]
